FAERS Safety Report 17020943 (Version 1)
Quarter: 2019Q4

REPORT INFORMATION
  Report Type: Spontaneous
  Country: US (occurrence: US)
  Receive Date: 20191112
  Receipt Date: 20191112
  Transmission Date: 20200122
  Serious: Yes (Death)
  Sender: FDA-Public Use
  Company Number: US-AMNEAL PHARMACEUTICALS-2019-AMRX-02607

PATIENT
  Age: 53 Year
  Sex: Female

DRUGS (3)
  1. HYDROXYCHLOROQUINE SULFATE. [Suspect]
     Active Substance: HYDROXYCHLOROQUINE SULFATE
     Indication: CONNECTIVE TISSUE DISORDER
     Dosage: UNK
     Route: 065
  2. PREDNISONE. [Suspect]
     Active Substance: PREDNISONE
     Indication: CONNECTIVE TISSUE DISORDER
     Dosage: UNK
     Route: 065
  3. RITUXIMAB. [Suspect]
     Active Substance: RITUXIMAB
     Indication: CONNECTIVE TISSUE DISORDER
     Dosage: UNK
     Route: 065

REACTIONS (4)
  - Pseudomonas infection [Fatal]
  - Aspergillus infection [Fatal]
  - Haemophagocytic lymphohistiocytosis [Fatal]
  - Multiple organ dysfunction syndrome [Fatal]
